FAERS Safety Report 21851069 (Version 2)
Quarter: 2023Q1

REPORT INFORMATION
  Report Type: Other
  Country: US (occurrence: None)
  Receive Date: 20230111
  Receipt Date: 20230210
  Transmission Date: 20230418
  Serious: Yes (Death)
  Sender: FDA-Public Use
  Company Number: US-ROCHE-3261509

PATIENT
  Age: 87 Year
  Sex: Male

DRUGS (1)
  1. VABYSMO [Suspect]
     Active Substance: FARICIMAB-SVOA
     Indication: Choroidal neovascularisation
     Dosage: INJECT 6MG VIA INTRAVITREAL ADMINISTRATION INTO THE AFFCTED EYE(S) ONCE EVERY 4 WEEK(S)
     Route: 050
     Dates: start: 20221019

REACTIONS (1)
  - Death [Fatal]
